FAERS Safety Report 19881667 (Version 2)
Quarter: 2021Q4

REPORT INFORMATION
  Report Type: Spontaneous
  Country: IT (occurrence: IT)
  Receive Date: 20210925
  Receipt Date: 20211116
  Transmission Date: 20220303
  Serious: Yes (Other)
  Sender: FDA-Public Use
  Company Number: None

PATIENT
  Age: 1 Year
  Sex: Female

DRUGS (7)
  1. ZOLGENSMA [Suspect]
     Active Substance: ONASEMNOGENE ABEPARVOVEC-XIOI
     Indication: Spinal muscular atrophy
     Dosage: 52.5 ML
     Route: 042
     Dates: start: 20210731, end: 20210731
  2. ESOMEPRAZOLE SODIUM [Concomitant]
     Active Substance: ESOMEPRAZOLE SODIUM
     Indication: Product used for unknown indication
     Dosage: 10 MG
     Route: 065
     Dates: start: 20210606, end: 20210914
  3. ESOMEPRAZOLE SODIUM [Concomitant]
     Active Substance: ESOMEPRAZOLE SODIUM
     Dosage: 10 MG, QD
     Route: 065
     Dates: start: 20210616, end: 20210927
  4. PREDNISOLONE [Concomitant]
     Active Substance: PREDNISOLONE
     Indication: Product used for unknown indication
     Dosage: 9 MG, QD
     Route: 065
     Dates: start: 20210728, end: 20210927
  5. PREDNISOLONE [Concomitant]
     Active Substance: PREDNISOLONE
     Dosage: 9 MG
     Route: 065
     Dates: start: 20210729, end: 20210810
  6. PREDNISOLONE [Concomitant]
     Active Substance: PREDNISOLONE
     Dosage: 13 MG
     Route: 065
     Dates: start: 20210828
  7. VITAMINS [Concomitant]
     Active Substance: VITAMINS
     Indication: Product used for unknown indication
     Dosage: 5 ML, QD
     Route: 065

REACTIONS (6)
  - Leukopenia [Recovered/Resolved]
  - Fibrin D dimer increased [Recovered/Resolved]
  - Thrombocytopenia [Recovered/Resolved]
  - Aspartate aminotransferase increased [Recovered/Resolved]
  - Hepatic enzyme increased [Unknown]
  - Pyrexia [Unknown]

NARRATIVE: CASE EVENT DATE: 20210803
